FAERS Safety Report 7161739-0 (Version None)
Quarter: 2010Q4

REPORT INFORMATION
  Report Type: 
  Country: None (occurrence: None)
  Receive Date: 20101215
  Receipt Date: 20101202
  Transmission Date: 20110411
  Serious: Yes (Life-Threatening, Other)
  Sender: FDA-Public Use
  Company Number: GB-ELI_LILLY_AND_COMPANY-GB201009003559

PATIENT
  Age: 43 Year
  Sex: Male

DRUGS (6)
  1. ZYPREXA [Suspect]
     Indication: PSYCHOTIC DISORDER
     Dosage: 5 MG, DAILY (1/D)
     Route: 030
  2. ZYPREXA [Interacting]
     Dosage: 10 MG, DAILY (1/D)
     Route: 030
     Dates: start: 20100903
  3. METHADONE [Interacting]
     Dosage: 40 MG, UNKNOWN
     Route: 048
     Dates: start: 20100729, end: 20100904
  4. CARBIMAZOLE [Concomitant]
     Indication: HYPERTHYROIDISM
     Dosage: 20 MG, UNKNOWN
     Route: 048
     Dates: start: 20100822
  5. PROPRANOLOL [Concomitant]
     Indication: HYPERTHYROIDISM
     Dosage: 40 MG, 3/D
     Route: 048
     Dates: start: 20100822
  6. CARBAMAZEPINE [Concomitant]
     Indication: HYPERTHYROIDISM
     Dates: start: 20100822

REACTIONS (5)
  - DRUG INTERACTION [None]
  - MIOSIS [None]
  - NARCOTIC INTOXICATION [None]
  - RESPIRATORY DEPRESSION [None]
  - UNRESPONSIVE TO STIMULI [None]
